FAERS Safety Report 13791278 (Version 2)
Quarter: 2017Q3

REPORT INFORMATION
  Report Type: Other
  Country: FR (occurrence: FR)
  Receive Date: 20170725
  Receipt Date: 20170809
  Transmission Date: 20171127
  Serious: Yes (Death)
  Sender: FDA-Public Use
  Company Number: FR-GEHC-2017CSU002165

PATIENT

DRUGS (5)
  1. LIDOCAINE. [Suspect]
     Active Substance: LIDOCAINE
     Indication: ARRHYTHMIA
     Dosage: UNK
     Route: 042
     Dates: start: 20170515
  2. AMIODARONE [Suspect]
     Active Substance: AMIODARONE
     Indication: ARRHYTHMIA
     Dosage: UNK
     Route: 042
     Dates: start: 2011
  3. NOREPINEPHRINE. [Concomitant]
     Active Substance: NOREPINEPHRINE
     Indication: CARDIAC FAILURE
  4. VISIPAQUE [Suspect]
     Active Substance: IODIXANOL
     Indication: ARRHYTHMIA
     Dosage: UNK, SINGLE
     Route: 042
     Dates: start: 20170518, end: 20170518
  5. DOBUTAMINE [Concomitant]
     Active Substance: DOBUTAMINE\DOBUTAMINE HYDROCHLORIDE
     Indication: CARDIAC FAILURE

REACTIONS (3)
  - Anuria [Fatal]
  - Blood thyroid stimulating hormone decreased [Fatal]
  - Acute respiratory distress syndrome [Fatal]

NARRATIVE: CASE EVENT DATE: 20170518
